FAERS Safety Report 9245590 (Version 2)
Quarter: 2013Q3

REPORT INFORMATION
  Report Type: Spontaneous
  Country: FR (occurrence: FR)
  Receive Date: 20130422
  Receipt Date: 20130909
  Transmission Date: 20140515
  Serious: Yes (Death)
  Sender: FDA-Public Use
  Company Number: FR-COVIDIEN/TYCO HEALTHCARE/MALLINCKRODT-T201301719

PATIENT
  Age: 67 Year
  Sex: Female
  Weight: 130 kg

DRUGS (1)
  1. OPTIJECT 350 [Suspect]
     Indication: ANGIOGRAM PULMONARY
     Dosage: 100 ML, SINGLE, 3ML/SEC
     Route: 042
     Dates: start: 20130218, end: 20130218

REACTIONS (3)
  - Anaphylactic shock [Fatal]
  - Cardio-respiratory arrest [Fatal]
  - Multi-organ failure [Fatal]
